FAERS Safety Report 7516646-8 (Version None)
Quarter: 2011Q2

REPORT INFORMATION
  Report Type: 
  Country: None (occurrence: None)
  Receive Date: 20110601
  Receipt Date: 20110525
  Transmission Date: 20111010
  Serious: Yes (Hospitalization, Other)
  Sender: FDA-Public Use
  Company Number: US-PFIZER INC-2011113630

PATIENT
  Sex: Male
  Weight: 80 kg

DRUGS (11)
  1. PREDNISOLONE [Concomitant]
     Indication: SKIN DISORDER
     Dosage: UNK
     Dates: end: 20100101
  2. XANAX [Concomitant]
     Indication: ANXIETY
     Dosage: 0.5 MG, 2X/DAY
     Route: 048
     Dates: start: 20100101, end: 20100101
  3. XANAX [Concomitant]
     Indication: PRURITUS
  4. LIPITOR [Concomitant]
     Indication: BLOOD CHOLESTEROL INCREASED
     Dosage: UNK
  5. CHANTIX [Suspect]
     Indication: SMOKING CESSATION THERAPY
     Dosage: 0.5 MG, 1X/DAY
     Route: 048
     Dates: start: 20091001, end: 20091101
  6. CRESTOR [Concomitant]
     Indication: BLOOD CHOLESTEROL INCREASED
     Dosage: 20 MG, DAILY
     Dates: end: 20100901
  7. PREDNISOLONE [Concomitant]
     Indication: DERMATITIS CONTACT
  8. VALTREX [Concomitant]
     Indication: HERPES VIRUS INFECTION
     Dosage: 500 MG, 1X/DAY
     Dates: start: 19960101
  9. ACETYLSALICYLIC ACID [Concomitant]
     Indication: BLOOD CHOLESTEROL INCREASED
     Dosage: 81 MG,DAILY
     Dates: end: 20100101
  10. XANAX [Concomitant]
     Indication: INSOMNIA
  11. PREDNISOLONE [Concomitant]
     Indication: IRRITABILITY

REACTIONS (12)
  - RASH [None]
  - OEDEMA PERIPHERAL [None]
  - INSOMNIA [None]
  - CHRONIC OBSTRUCTIVE PULMONARY DISEASE [None]
  - SKIN IRRITATION [None]
  - SKIN CANCER [None]
  - SKIN DISORDER [None]
  - ERYTHEMA [None]
  - PARAESTHESIA [None]
  - DIZZINESS [None]
  - PRURITUS [None]
  - URTICARIA [None]
